FAERS Safety Report 11874757 (Version 1)
Quarter: 2015Q4

REPORT INFORMATION
  Report Type: Spontaneous
  Country: US (occurrence: None)
  Receive Date: 20151228
  Receipt Date: 20151228
  Transmission Date: 20160305
  Serious: No
  Sender: FDA-Public Use
  Company Number: None

PATIENT
  Age: 57 Year
  Sex: Female
  Weight: 58.51 kg

DRUGS (3)
  1. CIPRO [Suspect]
     Active Substance: CIPROFLOXACIN HYDROCHLORIDE
     Indication: DIVERTICULITIS
     Route: 048
     Dates: start: 20151217, end: 20151219
  2. PROCARDIA [Concomitant]
     Active Substance: NIFEDIPINE
  3. FLAGYL [Suspect]
     Active Substance: METRONIDAZOLE\METRONIDAZOLE HYDROCHLORIDE
     Route: 048

REACTIONS (6)
  - Confusional state [None]
  - Irritability [None]
  - Dizziness [None]
  - Burning sensation [None]
  - Fatigue [None]
  - Paraesthesia [None]

NARRATIVE: CASE EVENT DATE: 20151218
